FAERS Safety Report 25953617 (Version 1)
Quarter: 2025Q4

REPORT INFORMATION
  Report Type: Spontaneous
  Country: US (occurrence: None)
  Receive Date: 20251022
  Receipt Date: 20251022
  Transmission Date: 20260117
  Serious: Yes (Hospitalization)
  Sender: FDA-CTU
  Company Number: None

PATIENT
  Sex: Male

DRUGS (2)
  1. HUMIRA [Suspect]
     Active Substance: ADALIMUMAB
     Indication: Proctitis ulcerative
     Dosage: 40 ML EVERY 14 DAYS SUBCUTANEOUS?
     Route: 058
     Dates: start: 20250822
  2. HUMIRA PEN CD/UC/HS STRT (ABB) [Concomitant]

REACTIONS (2)
  - Condition aggravated [None]
  - Colitis [None]
